FAERS Safety Report 4878867-2 (Version None)
Quarter: 2005Q4

REPORT INFORMATION
  Report Type: 
  Country: None (occurrence: None)
  Receive Date: 20051209
  Receipt Date: 20050919
  Transmission Date: 20060501
  Serious: Yes (Other)
  Sender: FDA-Public Use
  Company Number: USA-2003-0008915

PATIENT
  Age: 33 Year
  Sex: Female
  Weight: 132.4 kg

DRUGS (11)
  1. OXYCONTIN [Suspect]
     Indication: PAIN
     Dosage: 20 MG, BID, ORAL
     Route: 048
  2. PERCOCET [Suspect]
     Dosage: ORAL
     Route: 048
  3. PAXIL [Concomitant]
  4. ATIVAN [Concomitant]
  5. VALIUM [Concomitant]
  6. TRAZODONE [Concomitant]
  7. ALBUTEROL SULFATE AUTOHALER [Concomitant]
  8. SEREVENT [Concomitant]
  9. WELLBUTRIN [Concomitant]
  10. FLONASE [Concomitant]
  11. ADVAIR DISKUS 100/50 [Concomitant]

REACTIONS (35)
  - ABDOMINAL PAIN [None]
  - BACK PAIN [None]
  - BLISTER [None]
  - CHILLS [None]
  - CONFUSIONAL STATE [None]
  - CONSTIPATION [None]
  - DECREASED APPETITE [None]
  - DEPRESSION [None]
  - DERMATITIS CONTACT [None]
  - DIARRHOEA [None]
  - DRUG DEPENDENCE [None]
  - DRUG INEFFECTIVE [None]
  - DRUG INTOLERANCE [None]
  - DRUG WITHDRAWAL SYNDROME [None]
  - DYSPNOEA [None]
  - FATIGUE [None]
  - HEADACHE [None]
  - HOT FLUSH [None]
  - HYPOAESTHESIA [None]
  - INSOMNIA [None]
  - IRRITABILITY [None]
  - IRRITABLE BOWEL SYNDROME [None]
  - NAIL TINEA [None]
  - NASAL CONGESTION [None]
  - NAUSEA [None]
  - NERVOUSNESS [None]
  - NIGHT SWEATS [None]
  - OEDEMA PERIPHERAL [None]
  - PAIN [None]
  - PRURITUS [None]
  - TEARFULNESS [None]
  - TREMOR [None]
  - URINARY INCONTINENCE [None]
  - VOMITING [None]
  - WEIGHT DECREASED [None]
